FAERS Safety Report 5562769-2 (Version None)
Quarter: 2007Q4

REPORT INFORMATION
  Report Type: 
  Country: None (occurrence: None)
  Receive Date: 20071212
  Receipt Date: 20071212
  Transmission Date: 20080405
  Serious: Yes (Life-Threatening, Hospitalization)
  Sender: FDA-Public Use
  Company Number: None

PATIENT
  Age: 41 Year
  Sex: Male
  Weight: 81.6475 kg

DRUGS (5)
  1. PAROXETINE [Suspect]
     Indication: DEATH OF RELATIVE
     Dosage: 20 MG 2 DAILY PO
     Route: 048
     Dates: start: 20030501, end: 20030701
  2. PAROXETINE [Suspect]
     Indication: DEPRESSION
     Dosage: 20 MG 2 DAILY PO
     Route: 048
     Dates: start: 20030501, end: 20030701
  3. VENLAFAXINE WYETH PHARMACEUTICALS [Suspect]
     Indication: DEATH OF RELATIVE
     Dosage: 50 MG DAILY PO
     Route: 048
     Dates: start: 20030701, end: 20030901
  4. VENLAFAXINE WYETH PHARMACEUTICALS [Suspect]
     Indication: DEPRESSION
     Dosage: 50 MG DAILY PO
     Route: 048
     Dates: start: 20030701, end: 20030901
  5. EFFEXOR [Concomitant]

REACTIONS (1)
  - UNEVALUABLE EVENT [None]
